FAERS Safety Report 7410100-X (Version None)
Quarter: 2011Q2

REPORT INFORMATION
  Report Type: 
  Country: None (occurrence: None)
  Receive Date: 20110412
  Receipt Date: 20110406
  Transmission Date: 20111010
  Serious: Yes (Other)
  Sender: FDA-Public Use
  Company Number: PHHY2011US28869

PATIENT
  Age: 49 Year
  Sex: Female

DRUGS (1)
  1. COMBIPATCH [Suspect]
     Dosage: 50/140
     Route: 062

REACTIONS (1)
  - VAGINAL HAEMORRHAGE [None]
